FAERS Safety Report 16634893 (Version 2)
Quarter: 2019Q3

REPORT INFORMATION
  Report Type: Spontaneous
  Country: US (occurrence: US)
  Receive Date: 20190726
  Receipt Date: 20190913
  Transmission Date: 20191004
  Serious: Yes (Death, Other)
  Sender: FDA-Public Use
  Company Number: US-009507513-1907USA014039

PATIENT
  Age: 66 Year

DRUGS (2)
  1. KEYTRUDA [Suspect]
     Active Substance: PEMBROLIZUMAB
     Indication: MALIGNANT MELANOMA
     Dosage: UNK
  2. IPILIMUMAB [Suspect]
     Active Substance: IPILIMUMAB
     Indication: MALIGNANT MELANOMA
     Dosage: UNK

REACTIONS (4)
  - Transaminases increased [Unknown]
  - Malignant neoplasm progression [Unknown]
  - Colitis [Fatal]
  - Immune-mediated adverse reaction [Unknown]
